FAERS Safety Report 9788641 (Version 1)
Quarter: 2013Q4

REPORT INFORMATION
  Report Type: Spontaneous
  Country: KR (occurrence: KR)
  Receive Date: 20131230
  Receipt Date: 20131230
  Transmission Date: 20140711
  Serious: Yes (Death)
  Sender: FDA-Public Use
  Company Number: KR-JNJFOC-20131216873

PATIENT
  Sex: Male

DRUGS (5)
  1. FINIBAX [Suspect]
     Indication: PNEUMONIA
     Route: 041
     Dates: start: 20130509, end: 20130513
  2. TABAXIN [Concomitant]
     Indication: PRODUCT USED FOR UNKNOWN INDICATION
     Route: 065
     Dates: start: 20130506, end: 20130509
  3. CRAVIT [Concomitant]
     Indication: PRODUCT USED FOR UNKNOWN INDICATION
     Route: 065
     Dates: start: 20130506, end: 20130509
  4. ZANTAC [Concomitant]
     Indication: PRODUCT USED FOR UNKNOWN INDICATION
     Route: 065
     Dates: start: 20130506, end: 20130513
  5. BROMHEXINE [Concomitant]
     Indication: PRODUCT USED FOR UNKNOWN INDICATION
     Route: 065
     Dates: start: 20130506, end: 20130513

REACTIONS (1)
  - Shock [Fatal]
